FAERS Safety Report 17069926 (Version 1)
Quarter: 2019Q4

REPORT INFORMATION
  Report Type: Spontaneous
  Country: IN (occurrence: IN)
  Receive Date: 20191125
  Receipt Date: 20191125
  Transmission Date: 20200122
  Serious: Yes (Other)
  Sender: FDA-Public Use
  Company Number: IN-SA-2019SA322356

PATIENT
  Age: 44 Year
  Sex: Female

DRUGS (12)
  1. FILGRASTIM [Suspect]
     Active Substance: FILGRASTIM
     Dosage: 300 UG ON DAYS 2?4 OF THE CYCLE
     Route: 058
  2. DOCETAXEL. [Suspect]
     Active Substance: DOCETAXEL
     Indication: METASTASES TO LIVER
     Dosage: 75 MG/M2 NDLS 100 MG (75 MG/M2),
     Route: 042
     Dates: start: 201807
  3. DOCETAXEL. [Suspect]
     Active Substance: DOCETAXEL
     Indication: METASTASES TO LUNG
     Dosage: SECOND CYCLE WITH NDLS BASED
  4. RANITIDINE. [Suspect]
     Active Substance: RANITIDINE
     Dosage: 50 MG, BID
     Route: 042
     Dates: start: 201807
  5. DOXORUBICIN [Suspect]
     Active Substance: DOXORUBICIN
     Indication: METASTASES TO LUNG
  6. CYCLOPHOSPHAMIDE. [Suspect]
     Active Substance: CYCLOPHOSPHAMIDE
     Indication: METASTASES TO LUNG
  7. THYROXINE [Concomitant]
     Active Substance: LEVOTHYROXINE
     Indication: HYPOTHYROIDISM
     Dosage: 75 UG, QD
  8. CYCLOPHOSPHAMIDE. [Suspect]
     Active Substance: CYCLOPHOSPHAMIDE
     Indication: METASTASES TO LIVER
     Dosage: 800 MG ON DAY 1 OF THE CYCLE
     Route: 042
     Dates: start: 201807
  9. DEXAMETHASONE. [Suspect]
     Active Substance: DEXAMETHASONE
     Dosage: 8 MG, BID
     Route: 042
  10. ONDANSETRON [Suspect]
     Active Substance: ONDANSETRON
     Dosage: 8 MG, BID
     Route: 042
  11. DOXORUBICIN [Suspect]
     Active Substance: DOXORUBICIN
     Indication: METASTASES TO LIVER
     Dosage: 80 MG ON DAY 1 OF THE CYCLE
     Route: 042
     Dates: start: 201807
  12. NIFEDIPINE. [Concomitant]
     Active Substance: NIFEDIPINE
     Indication: HYPERTENSION
     Dosage: 10 MG, QD

REACTIONS (3)
  - Exposure during pregnancy [Unknown]
  - Foetal hypokinesia [Unknown]
  - Premature delivery [Unknown]
